FAERS Safety Report 12960084 (Version 3)
Quarter: 2016Q4

REPORT INFORMATION
  Report Type: Spontaneous
  Country: JP (occurrence: JP)
  Receive Date: 20161121
  Receipt Date: 20161229
  Transmission Date: 20170207
  Serious: Yes (Other)
  Sender: FDA-Public Use
  Company Number: JP-SA-2016SA209270

PATIENT
  Age: 92 Year
  Sex: Male

DRUGS (3)
  1. PLAVIX [Suspect]
     Active Substance: CLOPIDOGREL BISULFATE
     Route: 048
  2. BAYASPIRIN [Concomitant]
     Active Substance: ASPIRIN
     Route: 048
  3. COMPLAVIN [Suspect]
     Active Substance: ASPIRIN\CLOPIDOGREL BISULFATE
     Route: 048

REACTIONS (6)
  - Bile duct obstruction [Unknown]
  - Melaena [Unknown]
  - Dementia [Unknown]
  - Bile duct cancer [Unknown]
  - Colon cancer [Unknown]
  - Paget^s disease of the vulva [Unknown]

NARRATIVE: CASE EVENT DATE: 2009
